FAERS Safety Report 17823122 (Version 1)
Quarter: 2020Q2

REPORT INFORMATION
  Report Type: Spontaneous
  Country: GB (occurrence: GB)
  Receive Date: 20200526
  Receipt Date: 20200526
  Transmission Date: 20200714
  Serious: Yes (Other)
  Sender: FDA-Public Use
  Company Number: GB-TEVA-2020-GB-1239540

PATIENT
  Age: 78 Year
  Sex: Female
  Weight: 64 kg

DRUGS (12)
  1. BENDROFLUMETHIAZIDE [Concomitant]
     Active Substance: BENDROFLUMETHIAZIDE
     Dosage: 1 DOSAGE FORMS DAILY; EACH MORNING
     Dates: start: 20200128
  2. EZETIMIBE. [Concomitant]
     Active Substance: EZETIMIBE
     Dosage: 1 DOSAGEFORM
     Dates: start: 20200128
  3. CIPROFLOXACIN. [Suspect]
     Active Substance: CIPROFLOXACIN
     Dosage: 500 MILLIGRAM
     Dates: start: 20200130
  4. TRIMETHOPRIM. [Concomitant]
     Active Substance: TRIMETHOPRIM
     Dosage: FOR SEVEN DAYS,UNIT DOSE :2 DOSAGEFORM
     Dates: start: 20200326, end: 20200402
  5. ATORVASTATIN [Concomitant]
     Active Substance: ATORVASTATIN
     Dosage: 1 DOSAGEFORM
     Dates: start: 20200128
  6. FULTIUM-D3 [Concomitant]
     Active Substance: CHOLECALCIFEROL
     Dosage: 1 DOSAGEFORM
     Dates: start: 20200128
  7. FLUOXETINE [Concomitant]
     Active Substance: FLUOXETINE HYDROCHLORIDE
     Dosage: 1 DOSAGEFORM
     Dates: start: 20200128
  8. GABAPENTIN. [Concomitant]
     Active Substance: GABAPENTIN
     Dosage: 4 DOSAGE FORMS DAILY; IN THE MORNING AND AT MIDDAY
     Dates: start: 20200128
  9. MIRABEGRON [Concomitant]
     Active Substance: MIRABEGRON
     Dosage: 1 DOSAGEFORM
     Dates: start: 20200128
  10. AMLODIPINE [Concomitant]
     Active Substance: AMLODIPINE BESYLATE
     Dosage: 1 DOSAGEFORM
     Dates: start: 20200128
  11. PARACETAMOL [Concomitant]
     Active Substance: ACETAMINOPHEN
     Dosage: TAKE ONE OR TWO , FOUR TIMES DAILY
     Dates: start: 20200417, end: 20200421
  12. ZEROCREAM [Concomitant]
     Dosage: USE AS DIRECTED
     Dates: start: 20191205

REACTIONS (2)
  - Lip swelling [Recovered/Resolved]
  - Neck pain [Unknown]

NARRATIVE: CASE EVENT DATE: 20200130
